FAERS Safety Report 9000634 (Version 1)
Quarter: 2013Q1

REPORT INFORMATION
  Report Type: Spontaneous
  Country: FR (occurrence: FR)
  Receive Date: 20130107
  Receipt Date: 20130107
  Transmission Date: 20140127
  Serious: Yes (Other)
  Sender: FDA-Public Use
  Company Number: FR-SANOFI-AVENTIS-2013SA000056

PATIENT
  Age: 55 Year
  Sex: Female

DRUGS (3)
  1. DESMOPRESSIN ACETATE [Suspect]
     Indication: HAEMOSTASIS
     Route: 051
  2. DESMOPRESSIN ACETATE [Suspect]
     Indication: BLEEDING TIME PROLONGED
     Route: 051
  3. METHYLPREDNISOLONE [Concomitant]
     Indication: GRANULOMATOSIS WITH POLYANGIITIS
     Dosage: INFUSION

REACTIONS (3)
  - Myocardial ischaemia [Unknown]
  - Myocardial infarction [Unknown]
  - Cardiac arrest [Recovered/Resolved]
